FAERS Safety Report 8381951-2 (Version None)
Quarter: 2012Q2

REPORT INFORMATION
  Report Type: 
  Country: None (occurrence: None)
  Receive Date: 20120524
  Receipt Date: 20120509
  Transmission Date: 20120825
  Serious: Yes (Hospitalization)
  Sender: FDA-Public Use
  Company Number: DE-JNJFOC-20120111329

PATIENT
  Age: 57 Year
  Sex: Female
  Weight: 93 kg

DRUGS (2)
  1. MESALAMINE [Concomitant]
     Indication: COLITIS ULCERATIVE
     Route: 048
     Dates: start: 20060101
  2. REMICADE [Suspect]
     Indication: COLITIS ULCERATIVE
     Dosage: EVERY 6 TO 8 WEEKS
     Route: 042
     Dates: start: 20090827

REACTIONS (2)
  - BREAST CANCER IN SITU [None]
  - PAGET'S DISEASE OF THE BREAST [None]
